FAERS Safety Report 23831031 (Version 3)
Quarter: 2024Q3

REPORT INFORMATION
  Report Type: Spontaneous
  Country: CA (occurrence: CA)
  Receive Date: 20240508
  Receipt Date: 20240829
  Transmission Date: 20241017
  Serious: Yes (Death, Hospitalization, Other)
  Sender: PFIZER
  Company Number: CA-PFIZER INC-202300355738

PATIENT
  Age: 91 Year
  Sex: Female

DRUGS (4)
  1. RUXIENCE [Suspect]
     Active Substance: RITUXIMAB-PVVR
     Indication: Antineutrophil cytoplasmic antibody
     Dosage: 500 MG, DAY 1 AND DAY 15
     Route: 042
     Dates: start: 20221031, end: 20221114
  2. RUXIENCE [Suspect]
     Active Substance: RITUXIMAB-PVVR
     Dosage: 500 MG, EVERY 6 MONTHS
     Route: 042
     Dates: start: 20230403
  3. RUXIENCE [Suspect]
     Active Substance: RITUXIMAB-PVVR
     Dosage: 500 MG, EVERY 6 MONTHS
     Route: 042
     Dates: start: 20231101
  4. AMLODIPINE [Concomitant]
     Active Substance: AMLODIPINE BESYLATE
     Dosage: 10 MG

REACTIONS (10)
  - Death [Fatal]
  - Pneumonia [Unknown]
  - Anaemia [Recovered/Resolved]
  - Hypothyroidism [Not Recovered/Not Resolved]
  - COVID-19 [Unknown]
  - Off label use [Unknown]
  - Intentional product use issue [Unknown]
  - Fatigue [Not Recovered/Not Resolved]
  - Depression [Not Recovered/Not Resolved]
  - Hypersomnia [Not Recovered/Not Resolved]

NARRATIVE: CASE EVENT DATE: 20230101
